FAERS Safety Report 4831448-9 (Version None)
Quarter: 2005Q4

REPORT INFORMATION
  Report Type: 
  Country: None (occurrence: None)
  Receive Date: 20051118
  Receipt Date: 20051110
  Transmission Date: 20060501
  Serious: Yes (Hospitalization, Other)
  Sender: FDA-Public Use
  Company Number: US-ABBOTT-05P-163-0316913-00

PATIENT
  Sex: Male

DRUGS (23)
  1. HUMIRA [Suspect]
     Indication: RHEUMATOID ARTHRITIS
     Route: 058
     Dates: start: 20040725, end: 20040801
  2. HUMIRA [Suspect]
     Indication: ANKYLOSING SPONDYLITIS
     Route: 058
     Dates: start: 20040901, end: 20050317
  3. HUMIRA [Suspect]
     Route: 058
     Dates: end: 20050501
  4. HUMIRA [Suspect]
     Route: 058
     Dates: end: 20050601
  5. HUMIRA [Suspect]
     Route: 058
     Dates: end: 20050901
  6. METHYLPREDNISOLONE [Concomitant]
     Indication: RHEUMATOID ARTHRITIS
     Route: 048
     Dates: start: 20040901, end: 20050317
  7. METHYLPREDNISOLONE [Concomitant]
     Route: 048
     Dates: end: 20050501
  8. METHYLPREDNISOLONE [Concomitant]
     Route: 048
  9. ETANERCEPT [Concomitant]
     Indication: RHEUMATOID ARTHRITIS
     Dates: start: 20031001, end: 20040801
  10. PANTOPRAZOLE [Concomitant]
     Indication: DRUG USE FOR UNKNOWN INDICATION
     Route: 048
  11. RISEDRONATE SODIUM [Concomitant]
     Indication: DRUG USE FOR UNKNOWN INDICATION
     Route: 048
  12. CYMBALTA [Concomitant]
     Indication: DRUG USE FOR UNKNOWN INDICATION
     Route: 048
  13. DYAZIDE [Concomitant]
     Indication: DRUG USE FOR UNKNOWN INDICATION
     Route: 048
  14. LUNESTA [Concomitant]
     Indication: DRUG USE FOR UNKNOWN INDICATION
     Route: 048
  15. GABAPENTIN [Concomitant]
     Indication: DRUG USE FOR UNKNOWN INDICATION
     Route: 048
  16. OXYCODONE HCL [Concomitant]
     Indication: PAIN
     Route: 048
  17. METHOTREXATE [Concomitant]
     Indication: RHEUMATOID ARTHRITIS
     Route: 048
     Dates: start: 20031001, end: 20040805
  18. METHOTREXATE [Concomitant]
     Route: 048
     Dates: start: 20051109
  19. LEFLUNOMIDE [Concomitant]
     Indication: RHEUMATOID ARTHRITIS
     Route: 048
     Dates: start: 20040805
  20. LEFLUNOMIDE [Concomitant]
     Route: 048
     Dates: start: 20040901, end: 20050317
  21. LEFLUNOMIDE [Concomitant]
     Route: 048
     Dates: end: 20050501
  22. LEFLUNOMIDE [Concomitant]
     Route: 048
     Dates: end: 20050901
  23. LEFLUNOMIDE [Concomitant]
     Route: 048
     Dates: start: 20051109

REACTIONS (7)
  - CATARACT [None]
  - COCCIDIOIDOMYCOSIS [None]
  - COUGH [None]
  - HIP ARTHROPLASTY [None]
  - LUNG INFILTRATION [None]
  - PNEUMONIA [None]
  - SHOULDER OPERATION [None]
